FAERS Safety Report 18823042 (Version 2)
Quarter: 2021Q1

REPORT INFORMATION
  Report Type: Spontaneous
  Country: US (occurrence: US)
  Receive Date: 20210202
  Receipt Date: 20210209
  Transmission Date: 20210419
  Serious: Yes (Death, Life-Threatening, Hospitalization, Other)
  Sender: FDA-Public Use
  Company Number: NVSC2021US022525

PATIENT
  Age: 5 Year
  Sex: Male
  Weight: 22.8 kg

DRUGS (4)
  1. KYMRIAH [Suspect]
     Active Substance: TISAGENLECLEUCEL
     Indication: ACUTE LYMPHOCYTIC LEUKAEMIA RECURRENT
     Dosage: 2.8 X 10E6 CAR T CELLS/KG (ONE SINGLE DOSE)
     Route: 042
     Dates: start: 20210111, end: 20210111
  2. CYCLOPHOSPHAMIDE. [Concomitant]
     Active Substance: CYCLOPHOSPHAMIDE
     Indication: CHEMOTHERAPY
     Dosage: UNK
     Route: 065
     Dates: start: 20210111
  3. CEFEPIME [Concomitant]
     Active Substance: CEFEPIME HYDROCHLORIDE
     Indication: PRODUCT USED FOR UNKNOWN INDICATION
     Dosage: UNK
     Route: 065
  4. FLUDARABINE [Concomitant]
     Active Substance: FLUDARABINE PHOSPHATE
     Indication: CHEMOTHERAPY
     Dosage: UNK
     Route: 065
     Dates: start: 20210111

REACTIONS (18)
  - Pulmonary oedema [Unknown]
  - Aortic valve disease [Unknown]
  - Cytokine release syndrome [Fatal]
  - Brain herniation [Unknown]
  - Respiratory failure [Not Recovered/Not Resolved]
  - Blood pressure increased [Unknown]
  - Left ventricular dysfunction [Unknown]
  - Pyrexia [Fatal]
  - Cardiac dysfunction [Unknown]
  - Interventricular septum rupture [Unknown]
  - Hypotension [Fatal]
  - Right ventricular hypertension [Unknown]
  - Tricuspid valve disease [Unknown]
  - Brain oedema [Fatal]
  - Hypoxia [Fatal]
  - Febrile neutropenia [Not Recovered/Not Resolved]
  - Circulatory collapse [Unknown]
  - Mitral valve disease [Unknown]

NARRATIVE: CASE EVENT DATE: 20210120
